FAERS Safety Report 8511951-0 (Version None)
Quarter: 2012Q3

REPORT INFORMATION
  Report Type: 
  Country: None (occurrence: None)
  Receive Date: 20120716
  Receipt Date: 20120711
  Transmission Date: 20120928
  Serious: Yes (Hospitalization)
  Sender: FDA-Public Use
  Company Number: PHHY2012JP020481

PATIENT
  Sex: Male
  Weight: 67 kg

DRUGS (89)
  1. CERTICAN [Suspect]
     Dosage: 0.5 MG, UNK
     Route: 048
     Dates: start: 20090808, end: 20090809
  2. CERTICAN [Suspect]
     Dosage: 0.5 MG, UNK
     Route: 048
     Dates: start: 20091016, end: 20091016
  3. CERTICAN [Suspect]
     Dosage: 0.75 MG, UNK
     Route: 048
     Dates: start: 20100309, end: 20100315
  4. PROGRAF [Suspect]
     Dosage: 6 MG, UNK
     Route: 048
     Dates: start: 20090922, end: 20090924
  5. PROGRAF [Suspect]
     Dosage: 6.2 MG, UNK
     Route: 048
     Dates: start: 20091002, end: 20091004
  6. RISPERDAL [Concomitant]
     Dosage: 3.5 MG, UNK
     Route: 048
  7. LIPITOR [Concomitant]
     Dosage: 10 MG, UNK
     Route: 048
     Dates: start: 20100128
  8. DIFLUCAN [Concomitant]
     Dosage: 200 MG, UNK
     Route: 048
     Dates: start: 20091211
  9. ROCEPHIN [Concomitant]
     Dosage: UNK UKN, UNK
     Dates: start: 20100401, end: 20100402
  10. AMARYL [Concomitant]
     Dosage: 0.5 MG, UNK
     Route: 048
     Dates: start: 20100716
  11. CERTICAN [Suspect]
     Dosage: 0.5 MG, UNK
     Route: 048
     Dates: start: 20091014, end: 20091014
  12. CERTICAN [Suspect]
     Dosage: 0.5 MG, UNK
     Route: 048
     Dates: start: 20100316, end: 20100415
  13. PROGRAF [Suspect]
     Dosage: 4 MG, UNK
     Route: 048
     Dates: start: 20090815, end: 20090816
  14. PROGRAF [Suspect]
     Dosage: 5.4 MG, UNK
     Route: 048
     Dates: start: 20090917, end: 20090920
  15. PROGRAF [Suspect]
     Dosage: 7 MG, DAILY
     Route: 048
     Dates: start: 20091216
  16. PROGRAF [Suspect]
     Dosage: 4.7 MG, UNK
     Route: 048
     Dates: start: 20100128, end: 20100215
  17. MEROPENEM [Suspect]
     Dosage: UNK UKN, UNK
     Route: 042
  18. TRAZODONE HYDROCHLORIDE [Concomitant]
     Dosage: 50 MG, UNK
     Route: 048
     Dates: start: 20090831
  19. CLONAZEPAM [Concomitant]
     Dosage: 1 MG, UNK
     Route: 048
     Dates: start: 20090908
  20. CERTICAN [Suspect]
     Indication: HEART TRANSPLANT
     Dosage: 1.5 MG, UNK
     Dates: start: 20090730, end: 20090901
  21. CERTICAN [Suspect]
     Dosage: 0.75 MG, UNK
     Route: 048
     Dates: start: 20090810
  22. CERTICAN [Suspect]
     Dosage: 1 MG, UNK
     Route: 048
     Dates: start: 20090812, end: 20090824
  23. PROGRAF [Suspect]
     Dosage: 5.6 MG, UNK
     Route: 048
     Dates: start: 20100216, end: 20100325
  24. PROGRAF [Suspect]
     Dosage: 5.8 MG, UNK
     Route: 048
     Dates: start: 20100326, end: 20100327
  25. PROGRAF [Suspect]
     Dosage: 6 MG, UNK
     Route: 048
     Dates: start: 20100526, end: 20100620
  26. PROGRAF [Suspect]
     Dosage: 6.4 MG, DAILY
  27. PREDNISOLONE [Suspect]
     Dosage: 10 MG, UNK
     Route: 048
     Dates: start: 20090903, end: 20100326
  28. PREDNISOLONE [Suspect]
     Dosage: 7.5 MG, UNK
     Route: 048
     Dates: start: 20100327, end: 20100401
  29. AKINETON [Suspect]
     Dosage: 3 MG, UNK
     Route: 048
     Dates: start: 20090831, end: 20090901
  30. MEROPENEM [Suspect]
     Dosage: 1.5 MG, UNK
     Route: 042
     Dates: start: 20090831, end: 20090909
  31. RISPERDAL [Concomitant]
     Dosage: 2 MG, UNK
     Route: 048
  32. TRAZODONE HYDROCHLORIDE [Concomitant]
     Dosage: 25 MG, UNK
     Route: 048
  33. DIFLUCAN [Concomitant]
     Dosage: UNK UKN, UNK
     Route: 048
     Dates: start: 20091228
  34. CERTICAN [Suspect]
     Dosage: 1 MG, UNK
     Route: 048
     Dates: start: 20091015, end: 20091015
  35. CLONAZEPAM [Suspect]
  36. PROGRAF [Suspect]
     Dosage: 3.7 MG, UNK
     Route: 048
     Dates: start: 20090817, end: 20090901
  37. PROGRAF [Suspect]
     Dosage: 6.5 MG, UNK
     Route: 048
     Dates: start: 20090925, end: 20091001
  38. PROGRAF [Suspect]
     Dosage: 6.4 MG, UNK
     Route: 048
     Dates: start: 20100122, end: 20100127
  39. PROGRAF [Suspect]
     Dosage: 6 MG, UNK
     Route: 048
     Dates: start: 20100328, end: 20100406
  40. HALOPERIDOL [Concomitant]
     Dosage: 5 MG, UNK
     Route: 048
     Dates: start: 20090902, end: 20090905
  41. MAGLAX [Concomitant]
     Dosage: 660 MG, UNK
     Route: 048
     Dates: start: 20090822, end: 20090901
  42. SULPERAZON [Concomitant]
     Dosage: 1 G, UNK
     Route: 042
     Dates: start: 20090920, end: 20090926
  43. NOVOLIN R [Concomitant]
     Dosage: UNK UKN, UNK
     Route: 058
     Dates: start: 20100119
  44. CLINDAMYCIN PHOSPHATE [Concomitant]
     Dosage: UNK UKN, UNK
  45. CERTICAN [Suspect]
     Dosage: 1 MG, UNK
     Route: 048
     Dates: start: 20100220, end: 20100308
  46. PROGRAF [Suspect]
     Dosage: 4.2 MG, UNK
     Route: 048
     Dates: start: 20090810, end: 20090814
  47. PROGRAF [Suspect]
     Dosage: 5 MG, UNK
     Route: 048
     Dates: start: 20090902, end: 20090913
  48. PROGRAF [Suspect]
     Dosage: 4.7 MG, DAILY
     Route: 048
     Dates: start: 20100104, end: 20100121
  49. PREDNISOLONE [Suspect]
     Dosage: 5 MG, UNK
     Route: 048
     Dates: start: 20100424, end: 20100501
  50. RISPERDAL [Concomitant]
     Dosage: 3 MG, UNK
     Route: 048
  51. DAI-KENCHU [Concomitant]
     Dosage: UNK UKN, UNK
     Route: 048
     Dates: start: 20090824, end: 20090901
  52. PRIMOBOLAN-DEPOT INJ [Concomitant]
     Dosage: 15 MG, UNK
     Route: 048
     Dates: start: 20090917
  53. AMLODIPINE [Concomitant]
     Dosage: 5 MG, UNK
     Route: 048
     Dates: start: 20090909
  54. CERTICAN [Suspect]
     Dosage: 1.25 MG, UNK
     Route: 048
     Dates: start: 20090825, end: 20090826
  55. CERTICAN [Suspect]
     Dosage: 1 MG, UNK
     Route: 048
     Dates: start: 20090827, end: 20090901
  56. CERTICAN [Suspect]
     Dosage: 0.75 MG, UNK
     Route: 048
     Dates: start: 20100416
  57. PROGRAF [Suspect]
     Indication: HEART TRANSPLANT
     Dosage: 5 MG, UNK
     Route: 048
     Dates: start: 20090718, end: 20090721
  58. PROGRAF [Suspect]
     Dosage: 4.4 MG, UNK
     Route: 048
     Dates: start: 20090723, end: 20090809
  59. PROGRAF [Suspect]
     Dosage: 5.7 MG, UNK
     Route: 048
     Dates: start: 20090921, end: 20090921
  60. PROGRAF [Suspect]
     Dosage: 6.4 MG, UNK
     Route: 048
     Dates: start: 20091005, end: 20091021
  61. PROGRAF [Suspect]
     Dosage: 6.4 MG, DAILY
     Route: 048
     Dates: start: 20091109
  62. PROGRAF [Suspect]
     Dosage: 5.8 MG, UNK
     Route: 048
     Dates: start: 20100409
  63. PREDNISOLONE [Suspect]
     Dosage: UNK UKN, UNK
     Route: 048
     Dates: start: 20100528
  64. AKINETON [Suspect]
     Dosage: 3 MG, UNK
     Route: 048
     Dates: start: 20080814, end: 20090824
  65. MEROPENEM [Suspect]
     Dosage: 1.5 MG, UNK
     Route: 042
     Dates: start: 20090811, end: 20090824
  66. HALOPERIDOL [Concomitant]
     Dosage: 2.5 MG, UNK
     Route: 048
  67. CEFAZOLIN SODIUM [Concomitant]
     Dosage: 3 G, UNK
     Route: 042
     Dates: start: 20090801, end: 20090810
  68. BISOPROLOL FUMARATE [Concomitant]
     Dosage: 2.5 MG, UNK
     Route: 048
     Dates: start: 20090907
  69. GLIMICRON [Concomitant]
     Dosage: 20 MG, UNK
     Route: 048
     Dates: start: 20100227, end: 20100621
  70. ACYCLOVIR [Concomitant]
     Dosage: 750 MG, UNK
     Route: 042
     Dates: start: 20100410, end: 20100421
  71. LAXATIVES [Concomitant]
  72. PROGRAF [Suspect]
     Dosage: 4.9 MG, UNK
     Route: 048
     Dates: start: 20090916, end: 20090916
  73. PROGRAF [Suspect]
     Dosage: 6.7 MG, UNK
     Route: 048
     Dates: start: 20091022, end: 20091108
  74. PROGRAF [Suspect]
     Dosage: 5.4 MG, UNK
     Route: 048
     Dates: start: 20100621, end: 20100711
  75. PROGRAF [Suspect]
     Dosage: 5.2 MG, UNK
     Dates: start: 20100712
  76. PROGRAF [Suspect]
     Dosage: 7.7 MG, DAILY
  77. PREDNISOLONE [Suspect]
     Indication: HEART TRANSPLANT
     Dosage: 2.5 MG, UNK
     Route: 048
     Dates: start: 20090106, end: 20090902
  78. RISPERDAL [Concomitant]
     Dosage: 1 MG, UNK
     Route: 048
  79. VANCOMYCIN HYDROCHLORIDE [Concomitant]
     Dosage: 1500 MG, UNK
     Route: 042
     Dates: start: 20090811, end: 20090817
  80. SULFAMETHOXAZOLE AND TRIMETHOPRIM [Concomitant]
  81. CERTICAN [Suspect]
     Dosage: 1 MG, UNK
     Route: 048
     Dates: start: 20090807, end: 20090807
  82. PROGRAF [Suspect]
     Dosage: 4.7 MG, UNK
     Route: 048
     Dates: start: 20090722, end: 20090722
  83. PROGRAF [Suspect]
     Dosage: 2.47 MG, UNK
     Route: 048
     Dates: start: 20090914, end: 20090914
  84. PROGRAF [Suspect]
     Dosage: 4.4 MG, UNK
     Route: 048
     Dates: start: 20090915, end: 20090915
  85. PROGRAF [Suspect]
     Dosage: 5 MG, UNK
     Route: 048
     Dates: start: 20100407
  86. RISPERDAL [Concomitant]
     Dosage: 3 MG, UNK
     Route: 048
     Dates: start: 20080814
  87. VFEND [Concomitant]
     Dosage: 300 MG, UNK
     Route: 048
     Dates: start: 20091214, end: 20091224
  88. DOGMATYL [Concomitant]
     Dosage: 100 MG, UNK
     Route: 048
     Dates: start: 20100408, end: 20100522
  89. CELLCEPT [Concomitant]
     Dosage: UNK UKN, UNK

REACTIONS (9)
  - PLATELET COUNT DECREASED [None]
  - STUPOR [None]
  - PNEUMONIA ASPIRATION [None]
  - HERPES ZOSTER [None]
  - ASPERGILLOSIS ORAL [None]
  - DIABETES MELLITUS [None]
  - MALNUTRITION [None]
  - ALTERED STATE OF CONSCIOUSNESS [None]
  - ILEUS [None]
